FAERS Safety Report 25622695 (Version 3)
Quarter: 2025Q4

REPORT INFORMATION
  Report Type: Spontaneous
  Country: JP (occurrence: JP)
  Receive Date: 20250730
  Receipt Date: 20251021
  Transmission Date: 20260118
  Serious: Yes (Other)
  Sender: MERCK SHARP & DOHME LLC
  Company Number: JP-009507513-2313304

PATIENT
  Age: 79 Year
  Sex: Male

DRUGS (1)
  1. PEMBROLIZUMAB [Suspect]
     Active Substance: PEMBROLIZUMAB
     Dosage: 200MG; SINGLE DOSE  ROUTE: INTRAVENOUS DRIP
     Dates: start: 20241129

REACTIONS (3)
  - Cardiac tamponade [Recovered/Resolved]
  - Tumour pseudoprogression [Unknown]
  - Pericarditis malignant [Unknown]

NARRATIVE: CASE EVENT DATE: 20241203
